FAERS Safety Report 24005951 (Version 1)
Quarter: 2024Q2

REPORT INFORMATION
  Report Type: Spontaneous
  Country: CN (occurrence: CN)
  Receive Date: 20240624
  Receipt Date: 20240624
  Transmission Date: 20240716
  Serious: Yes (Other)
  Sender: FDA-Public Use
  Company Number: None

PATIENT
  Age: 51 Year
  Sex: Female
  Weight: 75 kg

DRUGS (5)
  1. CYCLOPHOSPHAMIDE [Suspect]
     Active Substance: CYCLOPHOSPHAMIDE
     Indication: Breast cancer female
     Dosage: 1 G, ONE TIME IN ONE DAY, DILUTED WITH 50 ML OF 0.9% SODIUM CHLORIDE, D1
     Route: 041
     Dates: start: 20240515, end: 20240515
  2. SODIUM CHLORIDE [Suspect]
     Active Substance: SODIUM CHLORIDE
     Indication: Medication dilution
     Dosage: 0.9% 100 ML, ONE TIME IN ONE DAY, ALONG WITH 120 MG OF EPIRUBICIN HYDROCHLORIDE AND STERILIZED WATER
     Route: 041
     Dates: start: 20240515, end: 20240515
  3. SODIUM CHLORIDE [Suspect]
     Active Substance: SODIUM CHLORIDE
     Dosage: 0.9% 50 ML, ONE TIME IN ONE DAY, USED TO DILUTE 1 G OF CYCLOPHOSPHAMIDE, D1
     Route: 041
     Dates: start: 20240515, end: 20240515
  4. EPIRUBICIN HYDROCHLORIDE [Suspect]
     Active Substance: EPIRUBICIN HYDROCHLORIDE
     Indication: Breast cancer female
     Dosage: 120 MG, ONE TIME IN ONE DAY, ALONG WITH STERILIZED WATER FOR INJECTION 50ML AND 0.9% SODIUM CHLORIDE
     Route: 041
     Dates: start: 20240515, end: 20240515
  5. WATER FOR INJECTION [Suspect]
     Active Substance: WATER
     Indication: Medication dilution
     Dosage: 50 ML, ONE TIME IN ONE DAY, ALONG WITH 120 MG OF EPIRUBICIN HYDROCHLORIDE AND 0.9% SODIUM CHLORIDE 1
     Route: 041
     Dates: start: 20240515, end: 20240515

REACTIONS (1)
  - Liver injury [Unknown]

NARRATIVE: CASE EVENT DATE: 20240604
